FAERS Safety Report 16769936 (Version 1)
Quarter: 2019Q3

REPORT INFORMATION
  Report Type: Spontaneous
  Country: CH (occurrence: CH)
  Receive Date: 20190904
  Receipt Date: 20190904
  Transmission Date: 20191005
  Serious: Yes (Other)
  Sender: FDA-Public Use
  Company Number: CH-ASTRAZENECA-2019SF22687

PATIENT
  Age: 31278 Day
  Sex: Female

DRUGS (19)
  1. CALCIMAGON D3 [Concomitant]
     Active Substance: CALCIUM\CHOLECALCIFEROL
  2. LIXIANA [Concomitant]
     Active Substance: EDOXABAN TOSYLATE
     Dates: end: 20190809
  3. FLAGYL [Concomitant]
     Active Substance: METRONIDAZOLE\METRONIDAZOLE HYDROCHLORIDE
     Route: 048
     Dates: start: 20190813, end: 20190816
  4. LEXOTANIL [Concomitant]
     Active Substance: BROMAZEPAM
     Dosage: AS NECESSARY
     Dates: start: 20190809
  5. BACTRIM [Concomitant]
     Active Substance: SULFAMETHOXAZOLE\TRIMETHOPRIM
     Dates: start: 201901
  6. CLEXANE [Concomitant]
     Active Substance: ENOXAPARIN SODIUM
     Dates: start: 20190812
  7. PRAVASTATINE [Concomitant]
     Active Substance: PRAVASTATIN
  8. VENLAFAXINE [Concomitant]
     Active Substance: VENLAFAXINE HYDROCHLORIDE
     Dates: end: 20190808
  9. FLAGYL [Concomitant]
     Active Substance: METRONIDAZOLE\METRONIDAZOLE HYDROCHLORIDE
     Route: 042
     Dates: start: 20190808, end: 20190812
  10. NEXIUM [Suspect]
     Active Substance: ESOMEPRAZOLE MAGNESIUM
     Route: 048
     Dates: start: 20190809, end: 20190814
  11. PREDNISONE. [Concomitant]
     Active Substance: PREDNISONE
     Dates: start: 201901
  12. VENLAFAXINE [Concomitant]
     Active Substance: VENLAFAXINE HYDROCHLORIDE
     Dates: start: 20190812
  13. TRAMAL [Concomitant]
     Active Substance: TRAMADOL
     Dosage: AS NECESSARY
     Dates: start: 20190809
  14. DILZEM [Concomitant]
     Active Substance: DILTIAZEM
  15. TORASEMIDE [Concomitant]
     Active Substance: TORSEMIDE
  16. CIPROFLOXACINE [Concomitant]
     Active Substance: CIPROFLOXACIN
     Dates: start: 20190813, end: 20190816
  17. DAFALGAN [Suspect]
     Active Substance: ACETAMINOPHEN
     Dosage: 1 G, 4DAYS
     Route: 048
     Dates: start: 20190809, end: 20190814
  18. CEFTRIAXONE. [Suspect]
     Active Substance: CEFTRIAXONE
     Route: 042
     Dates: start: 20190808, end: 20190812
  19. HEPARIN [Suspect]
     Active Substance: HEPARIN SODIUM
     Dosage: 1 DAY
     Route: 065
     Dates: start: 20190809, end: 20190811

REACTIONS (1)
  - Cholestatic liver injury [Recovering/Resolving]

NARRATIVE: CASE EVENT DATE: 20190814
